FAERS Safety Report 7403297-9 (Version None)
Quarter: 2011Q1

REPORT INFORMATION
  Report Type: 
  Country: None (occurrence: None)
  Receive Date: 20110330
  Receipt Date: 20110324
  Transmission Date: 20110831
  Serious: Yes (Hospitalization, Other)
  Sender: FDA-Public Use
  Company Number: 201110076

PATIENT
  Sex: Female

DRUGS (1)
  1. LIORESAL [Suspect]
     Indication: MUSCLE SPASTICITY
     Dosage: 499.2 MCG, DAILY, INTRATHECAL
     Route: 039

REACTIONS (7)
  - COGNITIVE DISORDER [None]
  - MUSCLE SPASTICITY [None]
  - HALLUCINATION [None]
  - DYSKINESIA [None]
  - ASTHENIA [None]
  - UNDERDOSE [None]
  - CONDITION AGGRAVATED [None]
